FAERS Safety Report 20518113 (Version 1)
Quarter: 2022Q1

REPORT INFORMATION
  Report Type: Spontaneous
  Country: DE (occurrence: DE)
  Receive Date: 20220225
  Receipt Date: 20220225
  Transmission Date: 20220424
  Serious: Yes (Other)
  Sender: FDA-Public Use
  Company Number: DE-LUNDBECK-DKLU3044346

PATIENT
  Sex: Male
  Weight: 2.625 kg

DRUGS (2)
  1. ESCITALOPRAM OXALATE [Suspect]
     Active Substance: ESCITALOPRAM OXALATE
     Indication: Exposure during pregnancy
     Dosage: 15 [MG/D (BIS 10) ]/ 10 MG/D UNTIL THE 4TH MONTHS, THEN 15 MG/D(15 [MG/D (UP TO 10) ]/ 10 MG/D UNTIL
     Route: 064
     Dates: start: 20200920, end: 20210620
  2. ACETAMINOPHEN [Concomitant]
     Active Substance: ACETAMINOPHEN
     Indication: Exposure during pregnancy
     Dosage: 500 MG/ PERHAPS ONCE A WEEK
     Route: 064

REACTIONS (2)
  - Small for dates baby [Unknown]
  - Foetal exposure during pregnancy [Unknown]
